FAERS Safety Report 7263926-X (Version None)
Quarter: 2011Q1

REPORT INFORMATION
  Report Type: 
  Country: None (occurrence: None)
  Receive Date: 20110130
  Receipt Date: 20101108
  Transmission Date: 20110831
  Serious: No
  Sender: FDA-Public Use
  Company Number: US-ABBOTT-10P-163-0684403-00

PATIENT
  Sex: Female
  Weight: 91.254 kg

DRUGS (8)
  1. GABAPENTIN [Concomitant]
     Indication: FIBROMYALGIA
  2. ATENOLOL [Concomitant]
     Indication: HYPERTENSION
  3. ZOLPIDEM [Concomitant]
     Indication: INSOMNIA
  4. HUMIRA [Suspect]
     Indication: RHEUMATOID ARTHRITIS
     Dates: start: 20090101
  5. HYDROCHLOROTHIAZIDE [Concomitant]
     Indication: HYPERTENSION
  6. VENLAFAXINE [Concomitant]
     Indication: ANXIETY
  7. HYDROXYZINE HCL [Concomitant]
     Indication: HYPERSENSITIVITY
  8. FEXOFENADINE HCL [Concomitant]
     Indication: HYPERSENSITIVITY

REACTIONS (9)
  - MYALGIA [None]
  - JOINT SWELLING [None]
  - LICHEN PLANUS [None]
  - RASH [None]
  - ARTHRALGIA [None]
  - SKIN DISCOLOURATION [None]
  - SKIN BURNING SENSATION [None]
  - BLOOD POTASSIUM DECREASED [None]
  - RASH PRURITIC [None]
